FAERS Safety Report 9486853 (Version 3)
Quarter: 2020Q4

REPORT INFORMATION
  Report Type: Spontaneous
  Country: JP (occurrence: JP)
  Receive Date: 20130829
  Receipt Date: 20201016
  Transmission Date: 20210114
  Serious: Yes (Other)
  Sender: FDA-Public Use
  Company Number: JP-MPIJNJ-2013-05998

PATIENT
  Age: 64 Year
  Sex: Female

DRUGS (3)
  1. BORTEZOMIB. [Suspect]
     Active Substance: BORTEZOMIB
     Indication: PLASMA CELL MYELOMA
     Dosage: 1.3 MILLIGRAM/SQ. METER
     Route: 042
     Dates: start: 201011, end: 201201
  2. DEXAMETHASONE. [Suspect]
     Active Substance: DEXAMETHASONE
     Indication: PLASMA CELL MYELOMA
     Dosage: 33 MILLIGRAM
     Route: 042
     Dates: start: 201011, end: 201201
  3. LAFUTIDINE [Concomitant]
     Active Substance: LAFUTIDINE
     Indication: NEUROPATHY PERIPHERAL
     Dosage: 10 MILLIGRAM, BID
     Route: 048
     Dates: start: 201011, end: 201201

REACTIONS (1)
  - Leukaemia [Unknown]
